FAERS Safety Report 14690841 (Version 1)
Quarter: 2018Q1

REPORT INFORMATION
  Report Type: Spontaneous
  Country: US (occurrence: US)
  Receive Date: 20180328
  Receipt Date: 20180328
  Transmission Date: 20180509
  Serious: No
  Sender: FDA-Public Use
  Company Number: US-TEVA-2018-US-873636

PATIENT
  Age: 74 Year
  Sex: Female
  Weight: 71 kg

DRUGS (2)
  1. QVAR REDIHALER [Suspect]
     Active Substance: BECLOMETHASONE DIPROPIONATE
     Indication: ASTHMA
     Dosage: 80 MICROGRAM DAILY;
     Dates: start: 20180317
  2. PROAIR HFA [Concomitant]
     Active Substance: ALBUTEROL SULFATE
     Indication: DYSPNOEA

REACTIONS (5)
  - Poor quality sleep [Unknown]
  - Feeling abnormal [Unknown]
  - Dizziness [Unknown]
  - Abdominal discomfort [Unknown]
  - Dyspnoea [Recovering/Resolving]
